FAERS Safety Report 10035223 (Version 1)
Quarter: 2014Q1

REPORT INFORMATION
  Report Type: Spontaneous
  Country: US (occurrence: US)
  Receive Date: 20140325
  Receipt Date: 20140325
  Transmission Date: 20141002
  Serious: Yes (Other)
  Sender: FDA-Public Use
  Company Number: US-ASTRAZENECA-2014SE18604

PATIENT
  Sex: Female

DRUGS (5)
  1. SYMBICORT [Suspect]
     Indication: CHRONIC OBSTRUCTIVE PULMONARY DISEASE
     Route: 055
  2. DULERA [Concomitant]
  3. PROVENTIL [Concomitant]
  4. 2 NASAL SPRAYS [Concomitant]
     Route: 045
  5. OXYGEN [Concomitant]
     Dosage: 24/7

REACTIONS (2)
  - Brain hypoxia [Unknown]
  - Memory impairment [Unknown]
